FAERS Safety Report 9486966 (Version 1)
Quarter: 2013Q3

REPORT INFORMATION
  Report Type: Spontaneous
  Country: US (occurrence: US)
  Receive Date: 20130829
  Receipt Date: 20130829
  Transmission Date: 20140515
  Serious: Yes (Other)
  Sender: FDA-Public Use
  Company Number: US-GLAXOSMITHKLINE-A1028550A

PATIENT
  Age: 66 Year
  Sex: Female

DRUGS (4)
  1. SORIATANE [Suspect]
     Indication: PSORIASIS
     Dosage: 25MG PER DAY
     Route: 048
     Dates: start: 20130322
  2. ZOCOR [Concomitant]
  3. SYNTHROID [Concomitant]
  4. TOPROL [Concomitant]

REACTIONS (10)
  - Alopecia [Not Recovered/Not Resolved]
  - Arthralgia [Not Recovered/Not Resolved]
  - Chapped lips [Unknown]
  - Genital infection fungal [Unknown]
  - Skin exfoliation [Unknown]
  - Pustular psoriasis [Not Recovered/Not Resolved]
  - Drug ineffective [Unknown]
  - Localised infection [Unknown]
  - Urinary tract infection [Unknown]
  - Bone pain [Unknown]
